FAERS Safety Report 7599638-2 (Version None)
Quarter: 2011Q2

REPORT INFORMATION
  Report Type: 
  Country: None (occurrence: None)
  Receive Date: 20110623
  Receipt Date: 20110608
  Transmission Date: 20111010
  Serious: Yes (Hospitalization)
  Sender: FDA-Public Use
  Company Number: 2011PROUSA00379

PATIENT
  Age: 78 Year
  Sex: Male
  Weight: 88.9 kg

DRUGS (9)
  1. EPA/DHA (DOCOSAHEXAENOIC ACID AND EICOSAPENTAENOIC ACID) [Concomitant]
  2. PROVENGE [Suspect]
     Dosage: 250 ML, SINGLE, INTRAVENOUS
     Route: 042
     Dates: start: 20110526, end: 20110526
  3. VITAMIN D (CHOLECALCIFEROL) [Concomitant]
  4. PROVENGE [Suspect]
     Indication: PROSTATE CANCER METASTATIC
     Dosage: 250 ML, SINGLE, INTRAVENOUS
     Route: 042
     Dates: start: 20110512, end: 20110512
  5. SYNTHROID [Concomitant]
  6. CALCIUM + VIT D (CALCIUM, COLECALCIFEROL) [Concomitant]
  7. CELEBREX [Concomitant]
  8. MEGACE [Concomitant]
  9. NIACINAMIDE [Concomitant]

REACTIONS (3)
  - PYREXIA [None]
  - DEHYDRATION [None]
  - TACHYCARDIA [None]
